FAERS Safety Report 7066254-0 (Version None)
Quarter: 2010Q4

REPORT INFORMATION
  Report Type: 
  Country: None (occurrence: None)
  Receive Date: 20101027
  Receipt Date: 20100723
  Transmission Date: 20110411
  Serious: Yes (Other)
  Sender: FDA-Public Use
  Company Number: HQWYE696211OCT04

PATIENT
  Sex: Female
  Weight: 91.71 kg

DRUGS (6)
  1. PREMPRO [Suspect]
     Indication: OSTEOPOROSIS
  2. PREMPRO [Suspect]
     Indication: PROPHYLAXIS
  3. PROVERA [Suspect]
     Indication: OSTEOPOROSIS
  4. PROVERA [Suspect]
     Indication: PROPHYLAXIS
  5. PREMARIN [Suspect]
     Indication: OSTEOPOROSIS
  6. PREMARIN [Suspect]
     Indication: PROPHYLAXIS

REACTIONS (1)
  - BREAST CANCER [None]
